FAERS Safety Report 5567394-5 (Version None)
Quarter: 2007Q4

REPORT INFORMATION
  Report Type: 
  Country: None (occurrence: None)
  Receive Date: 20071214
  Receipt Date: 20071203
  Transmission Date: 20080405
  Serious: Yes (Hospitalization)
  Sender: FDA-Public Use
  Company Number: 02100-JPN-07-0677

PATIENT
  Age: 76 Year
  Sex: Female

DRUGS (10)
  1. CILOSTAZOL [Suspect]
     Indication: CEREBRAL ARTERY STENOSIS
     Dosage: ONE OF 200 MG OR 75 MG ORAL
     Route: 048
     Dates: start: 20070824
  2. ASPIRIN [Concomitant]
  3. CARVEDILOL [Concomitant]
  4. CITICOLINE [Concomitant]
  5. ATORVASTATIN [Concomitant]
  6. MAGNESIUM OXIDE [Concomitant]
  7. CALCIUM POLYCARBOPHIL [Concomitant]
  8. ANYTAL [Concomitant]
  9. EPROSARTAN [Concomitant]
  10. RANITIDINE HCL [Concomitant]

REACTIONS (4)
  - ASTHENIA [None]
  - COMPRESSION FRACTURE [None]
  - DYSARTHRIA [None]
  - THORACIC VERTEBRAL FRACTURE [None]
